FAERS Safety Report 7451474-3 (Version None)
Quarter: 2011Q2

REPORT INFORMATION
  Report Type: 
  Country: None (occurrence: None)
  Receive Date: 20110502
  Receipt Date: 20110420
  Transmission Date: 20111010
  Serious: Yes (Hospitalization, Other)
  Sender: FDA-Public Use
  Company Number: B0716150A

PATIENT
  Age: 82 Year
  Sex: Female
  Weight: 55 kg

DRUGS (11)
  1. LOTREL [Concomitant]
     Route: 065
  2. WARFARIN [Suspect]
     Route: 065
  3. CLINDAMYCIN [Suspect]
     Indication: AORTIC VALVE REPLACEMENT
     Route: 065
  4. LORAZEPAM [Concomitant]
     Route: 065
  5. ATORVASTATIN [Concomitant]
     Route: 065
  6. ENOXAPARIN [Concomitant]
     Route: 065
  7. LITHIUM CARBONATE [Concomitant]
     Route: 065
  8. LOCAL ANESTHETIC [Concomitant]
  9. DONEPEZIL [Concomitant]
     Route: 065
  10. INSULIN GLARGINE [Concomitant]
     Route: 065
  11. SERTRALINE [Concomitant]
     Route: 065

REACTIONS (1)
  - HAEMORRHAGE [None]
